FAERS Safety Report 10220835 (Version 1)
Quarter: 2014Q2

REPORT INFORMATION
  Report Type: Report from Study
  Country: US (occurrence: US)
  Receive Date: 20140606
  Receipt Date: 20140606
  Transmission Date: 20141212
  Serious: Yes (Hospitalization)
  Sender: FDA-Public Use
  Company Number: US-JNJFOC-20140517856

PATIENT
  Age: 81 Year
  Sex: Female
  Weight: 77.15 kg

DRUGS (19)
  1. DOXORUBICIN [Suspect]
     Indication: ACUTE MYELOID LEUKAEMIA
     Dosage: ON DAY 4
     Route: 042
     Dates: start: 20140516
  2. VELCADE [Suspect]
     Indication: ACUTE MYELOID LEUKAEMIA
     Dosage: ON DAY 1
     Route: 058
     Dates: start: 20140513
  3. NORVASC [Concomitant]
     Route: 065
     Dates: start: 20140513
  4. LIPITOR [Concomitant]
     Route: 065
     Dates: start: 20140513
  5. SPIRULINA [Concomitant]
     Route: 065
     Dates: start: 20140513
  6. PROBIOTIC [Concomitant]
     Route: 065
     Dates: start: 20140513
  7. LEVAQUIN [Concomitant]
     Route: 065
     Dates: start: 20140430
  8. LEVOTHYROXINE [Concomitant]
     Route: 065
     Dates: start: 20140513
  9. ZESTRIL [Concomitant]
     Route: 065
     Dates: start: 20140513
  10. METOPROLOL [Concomitant]
     Route: 065
     Dates: start: 20140513
  11. HYDROCHLOROTHIAZIDE [Concomitant]
     Route: 065
  12. LOPRESSOR [Concomitant]
     Route: 065
     Dates: start: 20140513
  13. VITAMIN B6 [Concomitant]
     Route: 065
     Dates: start: 20140513
  14. RIFADIN [Concomitant]
     Route: 065
     Dates: start: 20140513
  15. ACYCLOVIR [Concomitant]
     Route: 065
     Dates: start: 20140513
  16. FOSAMAX D [Concomitant]
     Route: 065
     Dates: start: 20140513
  17. ISONIAZIDE [Concomitant]
     Route: 065
     Dates: start: 20140513
  18. ZOFRAN [Concomitant]
     Route: 065
     Dates: start: 20140513
  19. COMPAZINE [Concomitant]
     Route: 065
     Dates: start: 20140513

REACTIONS (1)
  - Sinus bradycardia [Not Recovered/Not Resolved]
